FAERS Safety Report 13167388 (Version 3)
Quarter: 2017Q1

REPORT INFORMATION
  Report Type: Spontaneous
  Country: CZ (occurrence: CZ)
  Receive Date: 20170131
  Receipt Date: 20170213
  Transmission Date: 20170428
  Serious: Yes (Hospitalization, Other)
  Sender: FDA-Public Use
  Company Number: CZ-GLAXOSMITHKLINE-CZ2017GSK011422

PATIENT
  Age: 64 Year
  Sex: Male

DRUGS (1)
  1. MEPOLIZUMAB [Suspect]
     Active Substance: MEPOLIZUMAB
     Indication: ASTHMA

REACTIONS (19)
  - Leukocytosis [Recovering/Resolving]
  - Pyrexia [Recovering/Resolving]
  - C-reactive protein increased [Recovered/Resolved]
  - Cough [Recovering/Resolving]
  - Red blood cell sedimentation rate increased [Recovered/Resolved]
  - Respiratory syncytial virus infection [Unknown]
  - Fatigue [Recovering/Resolving]
  - Skin lesion [Recovering/Resolving]
  - Secondary immunodeficiency [Unknown]
  - Urological examination abnormal [Recovering/Resolving]
  - Inflammation [Recovering/Resolving]
  - Enterovirus infection [Unknown]
  - Deep vein thrombosis [Recovered/Resolved with Sequelae]
  - Sepsis [Recovered/Resolved]
  - Rhinovirus infection [Unknown]
  - Staphylococcal infection [Unknown]
  - Venous thrombosis [Recovering/Resolving]
  - Liver function test increased [Recovering/Resolving]
  - Gastrointestinal disorder [Recovering/Resolving]

NARRATIVE: CASE EVENT DATE: 2016
